FAERS Safety Report 14962318 (Version 1)
Quarter: 2018Q2

REPORT INFORMATION
  Report Type: Spontaneous
  Country: US (occurrence: US)
  Receive Date: 20180601
  Receipt Date: 20180601
  Transmission Date: 20180711
  Serious: No
  Sender: FDA-Public Use
  Company Number: US-AUROBINDO-AUR-APU-2017-40882

PATIENT
  Age: 48 Year
  Sex: Female

DRUGS (5)
  1. HYDROCODONE BITARTRATE AND ACETAMINOPHEN TABLETS USP 5 MG/325 MG [Suspect]
     Active Substance: ACETAMINOPHEN\HYDROCODONE BITARTRATE
     Dosage: 2 DF, TWO TIMES A DAY
     Dates: start: 20170930
  2. IBUPROFEN. [Concomitant]
     Active Substance: IBUPROFEN
     Indication: PRODUCT USED FOR UNKNOWN INDICATION
  3. TYLENOL [Concomitant]
     Active Substance: ACETAMINOPHEN
     Indication: PRODUCT USED FOR UNKNOWN INDICATION
  4. HYDROCODONE BITARTRATE AND ACETAMINOPHEN TABLETS USP 5 MG/325 MG [Suspect]
     Active Substance: ACETAMINOPHEN\HYDROCODONE BITARTRATE
     Indication: BONE PAIN
     Dosage: UNK
     Dates: start: 2015
  5. DELOXI [Concomitant]
     Indication: PRODUCT USED FOR UNKNOWN INDICATION
     Dosage: UNK

REACTIONS (1)
  - Drug ineffective [Not Recovered/Not Resolved]
